FAERS Safety Report 19276926 (Version 1)
Quarter: 2021Q2

REPORT INFORMATION
  Report Type: Report from Study
  Country: DE (occurrence: DE)
  Receive Date: 20210519
  Receipt Date: 20210519
  Transmission Date: 20210717
  Serious: Yes (Hospitalization)
  Sender: FDA-Public Use
  Company Number: DE-ROCHE-2105568

PATIENT
  Age: 29 Year
  Sex: Female
  Weight: 50 kg

DRUGS (34)
  1. ESTRADIOL. [Concomitant]
     Active Substance: ESTRADIOL
     Indication: HORMONE REPLACEMENT THERAPY
     Dates: start: 201801
  2. LONQUEX [Concomitant]
     Active Substance: LIPEGFILGRASTIM
     Indication: PROPHYLAXIS
     Dates: start: 20180606, end: 20180606
  3. RANITIDIN [Concomitant]
     Active Substance: RANITIDINE HYDROCHLORIDE
     Dates: start: 20180327, end: 20180327
  4. CLONT (GERMANY) [Concomitant]
     Indication: ABDOMINAL PAIN
     Dates: start: 20180917, end: 20180922
  5. ATEZOLIZUMAB. [Suspect]
     Active Substance: ATEZOLIZUMAB
     Indication: OVARIAN CANCER
     Dosage: DATE OF MOST RECENT DOSE OF BLINDED ATEZOLIZUMAB ON 15/MAY/2018?MOST RECENT DOSE PRIOR TO SAE COLITI
     Route: 042
     Dates: start: 20180306
  6. PACLITAXEL. [Suspect]
     Active Substance: PACLITAXEL
     Indication: OVARIAN CANCER
     Dosage: DATE OF MOST RECENT DOSE (271.25 MG) ON 15/MAY/2018 AND 5/JUN/2018 (267.75 MG).?MOST RECENT DOSE PRI
     Route: 042
     Dates: start: 20180306
  7. ASPIRIN. [Concomitant]
     Active Substance: ASPIRIN
     Indication: PROPHYLAXIS
     Dates: start: 201801
  8. TAVEGIL [Concomitant]
     Active Substance: CLEMASTINE FUMARATE
     Indication: PROPHYLAXIS
     Dates: start: 20180515, end: 20180515
  9. TAVEGIL [Concomitant]
     Active Substance: CLEMASTINE FUMARATE
     Dates: start: 20180306, end: 20180306
  10. MIRTAZAPINE. [Concomitant]
     Active Substance: MIRTAZAPINE
     Indication: DEPRESSION
     Dates: start: 20180710
  11. PANTOPRAZOL [Concomitant]
     Active Substance: PANTOPRAZOLE SODIUM
     Indication: PROPHYLAXIS
     Dates: start: 201801
  12. PANTOPRAZOL [Concomitant]
     Active Substance: PANTOPRAZOLE SODIUM
     Indication: GASTRIC STENOSIS
     Route: 042
     Dates: start: 20180525, end: 20180525
  13. LONQUEX [Concomitant]
     Active Substance: LIPEGFILGRASTIM
     Indication: NEUTROPENIA
     Dates: start: 20180516, end: 20180516
  14. GRANISETRON [Concomitant]
     Active Substance: GRANISETRON
     Dates: start: 20180605, end: 20180605
  15. TAVEGIL [Concomitant]
     Active Substance: CLEMASTINE FUMARATE
     Dates: start: 20180315, end: 20180316
  16. TAVEGIL [Concomitant]
     Active Substance: CLEMASTINE FUMARATE
     Dates: start: 20180327, end: 20180327
  17. RANITIDIN [Concomitant]
     Active Substance: RANITIDINE HYDROCHLORIDE
     Dates: start: 20180306, end: 20180306
  18. RESOLOR [Concomitant]
     Active Substance: PRUCALOPRIDE SUCCINATE
     Indication: CONSTIPATION
     Dates: start: 201806
  19. PROPOFOL. [Concomitant]
     Active Substance: PROPOFOL
     Indication: PROPHYLAXIS
     Dates: start: 20180525, end: 20180525
  20. DEXAMETHASON [Concomitant]
     Active Substance: DEXAMETHASONE
     Route: 042
     Dates: start: 20180327, end: 20180327
  21. TAVEGIL [Concomitant]
     Active Substance: CLEMASTINE FUMARATE
     Indication: PRURITUS
     Dates: start: 20180605, end: 20180605
  22. RANITIDIN [Concomitant]
     Active Substance: RANITIDINE HYDROCHLORIDE
     Dates: start: 20180605, end: 20180605
  23. BEVACIZUMAB. [Suspect]
     Active Substance: BEVACIZUMAB
     Indication: OVARIAN CANCER
     Dosage: DATE OF MOST RECENT DOSE (780 MG) OF BEVACIZUMAB ON 15/MAY/2018?MOST RECENT DOSE PRIOR TO SAE COLITI
     Route: 042
     Dates: start: 20180327
  24. DEXAMETHASON [Concomitant]
     Active Substance: DEXAMETHASONE
     Route: 042
     Dates: start: 20180306, end: 20180306
  25. GRANISETRON [Concomitant]
     Active Substance: GRANISETRON
     Indication: PROPHYLAXIS
     Dates: start: 20180515, end: 20180515
  26. GRANISETRON [Concomitant]
     Active Substance: GRANISETRON
     Dates: start: 20180327, end: 20180327
  27. VITAMINE D [Concomitant]
     Active Substance: CHOLECALCIFEROL
     Indication: PROPHYLAXIS
     Dates: start: 201805
  28. DEXAMETHASON [Concomitant]
     Active Substance: DEXAMETHASONE
     Indication: PROPHYLAXIS
     Route: 042
     Dates: start: 20180515, end: 20180515
  29. GRANISETRON [Concomitant]
     Active Substance: GRANISETRON
     Dates: start: 20180306, end: 20180306
  30. TAVOR (LORAZEPAM) [Concomitant]
     Active Substance: LORAZEPAM
     Indication: PROPHYLAXIS
     Dates: start: 20180305
  31. RESOLOR [Concomitant]
     Active Substance: PRUCALOPRIDE SUCCINATE
     Indication: PROPHYLAXIS
     Dates: start: 20180618
  32. CARBOPLATIN. [Suspect]
     Active Substance: CARBOPLATIN
     Indication: OVARIAN CANCER
     Dosage: AT A DOSE TO ACHIEVE A TARGET AREA UNDER THE CURVE (AUC) OF 6 MILLIGRAMS PER MILLILITER*MINUTE (MG/M
     Route: 042
     Dates: start: 20180306
  33. RANITIDIN [Concomitant]
     Active Substance: RANITIDINE HYDROCHLORIDE
     Indication: PROPHYLAXIS
     Dates: start: 20180515, end: 20180515
  34. METOCLOPRAMID [Concomitant]
     Active Substance: METOCLOPRAMIDE
     Indication: PROPHYLAXIS
     Dates: start: 201802

REACTIONS (3)
  - Haemorrhage [Recovered/Resolved]
  - Colitis [Recovered/Resolved]
  - Gastric stenosis [Recovered/Resolved]

NARRATIVE: CASE EVENT DATE: 20180401
